FAERS Safety Report 25096228 (Version 3)
Quarter: 2025Q3

REPORT INFORMATION
  Report Type: Report from Study
  Country: CA (occurrence: CA)
  Receive Date: 20250319
  Receipt Date: 20250810
  Transmission Date: 20251020
  Serious: Yes (Hospitalization, Other)
  Sender: ALEXION PHARMACEUTICALS
  Company Number: CA-AstraZeneca-CH-00821102A

PATIENT
  Sex: Female

DRUGS (15)
  1. ANIFROLUMAB [Suspect]
     Active Substance: ANIFROLUMAB
     Indication: Autoantibody positive
     Dosage: 300 MILLIGRAM, Q4W
     Dates: start: 20250129
  2. ANIFROLUMAB [Suspect]
     Active Substance: ANIFROLUMAB
     Indication: Systemic lupus erythematosus
  3. VITAMIN D [Concomitant]
     Active Substance: VITAMIN D NOS
  4. TRAZODONE [Concomitant]
     Active Substance: TRAZODONE HYDROCHLORIDE
  5. SPIRONOLACTONE [Concomitant]
     Active Substance: SPIRONOLACTONE
  6. RIFAXIMIN [Concomitant]
     Active Substance: RIFAXIMIN
  7. PANTOPRAZOLE [Concomitant]
     Active Substance: PANTOPRAZOLE
  8. METOCLOPRAMIDE [Concomitant]
     Active Substance: METOCLOPRAMIDE
  9. HYDROXYCHLOROQUINE [Concomitant]
     Active Substance: HYDROXYCHLOROQUINE
  10. FUROSEMIDE [Concomitant]
     Active Substance: FUROSEMIDE
  11. FOLIC ACID [Concomitant]
     Active Substance: FOLIC ACID
  12. HYDROMORPHONE [Concomitant]
     Active Substance: HYDROMORPHONE
  13. FENTANYL [Concomitant]
     Active Substance: FENTANYL
     Route: 065
  14. CAMPRAL [Concomitant]
     Active Substance: ACAMPROSATE CALCIUM
     Route: 065
  15. PREDNISONE [Concomitant]
     Active Substance: PREDNISONE
     Route: 065

REACTIONS (20)
  - Alcoholism [Unknown]
  - Fall [Unknown]
  - Head injury [Unknown]
  - Back pain [Unknown]
  - Diarrhoea [Unknown]
  - Vomiting [Unknown]
  - Alcohol use [Recovered/Resolved]
  - Cirrhosis alcoholic [Unknown]
  - Alcoholic seizure [Unknown]
  - Gait disturbance [Unknown]
  - Haematological infection [Unknown]
  - Incorrect dose administered [Unknown]
  - Pain [Unknown]
  - Fatigue [Unknown]
  - Inappropriate schedule of product administration [Unknown]
  - Seizure [Recovered/Resolved]
  - Mental impairment [Recovered/Resolved]
  - Dry mouth [Recovered/Resolved]
  - Alcohol abuse [Unknown]
  - Neutrophil count increased [Unknown]
